FAERS Safety Report 5120244-3 (Version None)
Quarter: 2006Q4

REPORT INFORMATION
  Report Type: 
  Country: None (occurrence: None)
  Receive Date: 20061002
  Receipt Date: 20061002
  Transmission Date: 20070319
  Serious: Yes (Other)
  Sender: FDA-Public Use
  Company Number: None

PATIENT
  Sex: Male
  Weight: 83.9154 kg

DRUGS (2)
  1. TRILEPTAL [Suspect]
     Indication: NEURALGIA
     Dosage: 600 MG BID PO
     Route: 048
     Dates: start: 20060707, end: 20060909
  2. LYRICA [Suspect]
     Indication: HYPOAESTHESIA
     Dosage: 100 MG TID PO
     Route: 048
     Dates: start: 20060909, end: 20060909

REACTIONS (26)
  - ABDOMINAL DISTENSION [None]
  - ANOREXIA [None]
  - ASPIRATION [None]
  - BACK PAIN [None]
  - CONFUSIONAL STATE [None]
  - DRUG INEFFECTIVE [None]
  - DYSPHAGIA [None]
  - FATIGUE [None]
  - FLUID INTAKE REDUCED [None]
  - GENERAL PHYSICAL HEALTH DETERIORATION [None]
  - HEADACHE [None]
  - HYPOAESTHESIA [None]
  - LYMPHADENOPATHY [None]
  - MUSCLE SPASMS [None]
  - NERVOUS SYSTEM DISORDER [None]
  - NEURALGIA [None]
  - NON-CARDIAC CHEST PAIN [None]
  - OEDEMA PERIPHERAL [None]
  - ORAL INTAKE REDUCED [None]
  - PAIN [None]
  - PAIN IN EXTREMITY [None]
  - PHOTOPHOBIA [None]
  - REGURGITATION OF FOOD [None]
  - TREMOR [None]
  - VISUAL DISTURBANCE [None]
  - VISUAL FIELD DEFECT [None]
